FAERS Safety Report 5946942-7 (Version None)
Quarter: 2008Q4

REPORT INFORMATION
  Report Type: 
  Country: None (occurrence: None)
  Receive Date: 20081110
  Receipt Date: 20081106
  Transmission Date: 20090506
  Serious: Yes (Hospitalization)
  Sender: FDA-Public Use
  Company Number: CH-BRISTOL-MYERS SQUIBB COMPANY-14397426

PATIENT
  Age: 61 Year
  Sex: Female

DRUGS (12)
  1. CISPLATIN [Suspect]
     Indication: MALIGNANT MELANOMA
     Route: 041
     Dates: start: 20080508, end: 20080511
  2. FOSICOMP TABS 20MG/12.5MG [Suspect]
     Dosage: DURATION: LONG TERM USE
     Route: 048
  3. VELBE [Suspect]
     Indication: MALIGNANT MELANOMA
     Route: 041
     Dates: start: 20080507, end: 20080511
  4. LASIX [Suspect]
     Dates: start: 20080509, end: 20080509
  5. DACARBAZINE [Concomitant]
     Indication: MALIGNANT MELANOMA
     Dates: start: 20080507, end: 20080511
  6. ZOFRAN [Concomitant]
     Indication: NAUSEA
     Dates: start: 20080507, end: 20080513
  7. ZOFRAN [Concomitant]
     Indication: VOMITING
     Dates: start: 20080507, end: 20080513
  8. PRIMPERAN [Concomitant]
     Indication: NAUSEA
     Dates: start: 20080513, end: 20080514
  9. PRIMPERAN [Concomitant]
     Indication: VOMITING
     Dates: start: 20080513, end: 20080514
  10. APREPITANT [Concomitant]
     Route: 048
     Dates: start: 20080507, end: 20080509
  11. DEXAMETHASONE SODIUM PHOSPHATE [Concomitant]
     Indication: NAUSEA
     Dates: start: 20080507, end: 20080511
  12. DEXAMETHASONE SODIUM PHOSPHATE [Concomitant]
     Indication: VOMITING
     Dates: start: 20080507, end: 20080511

REACTIONS (2)
  - HYPONATRAEMIA [None]
  - INAPPROPRIATE ANTIDIURETIC HORMONE SECRETION [None]
